FAERS Safety Report 6289312-7 (Version None)
Quarter: 2009Q3

REPORT INFORMATION
  Report Type: 
  Country: None (occurrence: None)
  Receive Date: 20090730
  Receipt Date: 20090723
  Transmission Date: 20100115
  Serious: Yes (Other)
  Sender: FDA-Public Use
  Company Number: US-BIOGENIDEC-2008BI022974

PATIENT
  Age: 66 Year
  Sex: Female
  Weight: 85 kg

DRUGS (1)
  1. AVONEX [Suspect]
     Indication: MULTIPLE SCLEROSIS
     Route: 030
     Dates: start: 20080611

REACTIONS (6)
  - BLADDER CANCER [None]
  - CALCINOSIS [None]
  - GAIT DISTURBANCE [None]
  - MUSCLE SPASTICITY [None]
  - NEPHROLITHIASIS [None]
  - URINARY TRACT INFECTION [None]
